FAERS Safety Report 15673318 (Version 9)
Quarter: 2019Q4

REPORT INFORMATION
  Report Type: Spontaneous
  Country: US (occurrence: US)
  Receive Date: 20181129
  Receipt Date: 20191113
  Transmission Date: 20200122
  Serious: No
  Sender: FDA-Public Use
  Company Number: US-PFIZER INC-2018480225

PATIENT
  Age: 69 Year
  Sex: Female
  Weight: 77 kg

DRUGS (4)
  1. PREMARIN [Suspect]
     Active Substance: ESTROGENS, CONJUGATED
     Indication: HYSTERECTOMY
     Dosage: UNK
  2. PREMARIN [Suspect]
     Active Substance: ESTROGENS, CONJUGATED
     Dosage: 0.625 MG, DAILY
     Route: 048
  3. PREMARIN [Suspect]
     Active Substance: ESTROGENS, CONJUGATED
     Indication: HORMONE REPLACEMENT THERAPY
     Dosage: 0.625 MG, 1X/DAY
     Route: 048
     Dates: start: 1991
  4. PREMARIN [Suspect]
     Active Substance: ESTROGENS, CONJUGATED
     Indication: MENOPAUSE
     Dosage: 0.6 MG, UNK (TWO 0.3MG TABLETS)

REACTIONS (9)
  - Oropharyngeal pain [Unknown]
  - Migraine [Unknown]
  - Aphonia [Unknown]
  - Nervousness [Unknown]
  - Abdominal discomfort [Unknown]
  - Viral infection [Unknown]
  - Ear infection [Recovered/Resolved]
  - Drug ineffective [Unknown]
  - Body height decreased [Unknown]

NARRATIVE: CASE EVENT DATE: 201905
